FAERS Safety Report 16547184 (Version 1)
Quarter: 2019Q3

REPORT INFORMATION
  Report Type: Spontaneous
  Country: DE (occurrence: DE)
  Receive Date: 20190709
  Receipt Date: 20190709
  Transmission Date: 20191004
  Serious: Yes (Other)
  Sender: FDA-Public Use
  Company Number: DE-BAUSCH-BL-2019-017335

PATIENT
  Age: 79 Year
  Sex: Male
  Weight: 126 kg

DRUGS (30)
  1. HALOPERIDOL. [Suspect]
     Active Substance: HALOPERIDOL
     Indication: NAUSEA
     Route: 065
  2. ALIZAPRIDE [Suspect]
     Active Substance: ALIZAPRIDE
     Indication: NAUSEA
     Route: 065
  3. OPIPRAMOL [Suspect]
     Active Substance: OPIPRAMOL
     Indication: FEAR
     Route: 065
  4. LAVENDER OIL [Suspect]
     Active Substance: LAVENDER OIL
     Indication: FEAR
     Route: 065
  5. PREGABALIN. [Suspect]
     Active Substance: PREGABALIN
     Indication: FEAR
     Route: 065
  6. ONDANSETRON [Suspect]
     Active Substance: ONDANSETRON
     Indication: NAUSEA
     Route: 065
  7. SULPIRIDE [Suspect]
     Active Substance: SULPIRIDE
     Indication: FEAR
     Route: 065
  8. LEVOMEPROMAZINE [Suspect]
     Active Substance: LEVOMEPROMAZINE
     Indication: FEAR
     Route: 065
  9. SERTRALINE [Suspect]
     Active Substance: SERTRALINE HYDROCHLORIDE
     Indication: FEAR
     Route: 065
  10. VENLAFAXINE [Suspect]
     Active Substance: VENLAFAXINE HYDROCHLORIDE
     Indication: FEAR
     Route: 065
  11. METOCLOPRAMIDE. [Suspect]
     Active Substance: METOCLOPRAMIDE
     Indication: NAUSEA
     Route: 065
  12. RISPERIDONE. [Suspect]
     Active Substance: RISPERIDONE
     Indication: FEAR
     Route: 065
  13. DOXEPIN [Suspect]
     Active Substance: DOXEPIN
     Indication: FEAR
     Route: 065
  14. PIPAMPERONE [Suspect]
     Active Substance: PIPAMPERONE
     Indication: FEAR
     Route: 065
  15. AMITRIPTYLINE [Suspect]
     Active Substance: AMITRIPTYLINE
     Indication: FEAR
     Route: 065
  16. LORAZEPAM. [Suspect]
     Active Substance: LORAZEPAM
     Indication: FEAR
     Route: 065
  17. PHENYLBUTAZONE [Suspect]
     Active Substance: PHENYLBUTAZONE
     Indication: ABDOMINAL PAIN UPPER
     Route: 065
  18. NOVAMINSULFON [Suspect]
     Active Substance: METAMIZOLE
     Indication: ABDOMINAL PAIN UPPER
     Route: 065
  19. CYCLIZINE [Suspect]
     Active Substance: CYCLIZINE
     Indication: NAUSEA
     Route: 065
  20. DEXAMETHASONE. [Suspect]
     Active Substance: DEXAMETHASONE
     Indication: NAUSEA
     Route: 065
  21. IBUPROFEN. [Suspect]
     Active Substance: IBUPROFEN
     Indication: ABDOMINAL PAIN UPPER
     Route: 065
  22. TRAMADOL. [Suspect]
     Active Substance: TRAMADOL
     Indication: ABDOMINAL PAIN UPPER
     Dosage: 2X100 MG
     Route: 065
  23. DICLOFENAC [Suspect]
     Active Substance: DICLOFENAC
     Indication: ABDOMINAL PAIN UPPER
     Route: 065
  24. TRAMADOL. [Suspect]
     Active Substance: TRAMADOL
     Indication: ABDOMINAL PAIN UPPER
     Route: 065
  25. PROMETHAZINE [Suspect]
     Active Substance: PROMETHAZINE HYDROCHLORIDE
     Indication: FEAR
     Route: 065
  26. PARACETAMOL/CODEINE [Suspect]
     Active Substance: ACETAMINOPHEN\CODEINE PHOSPHATE
     Indication: ABDOMINAL PAIN UPPER
     Route: 065
  27. DOMPERIDONE [Suspect]
     Active Substance: DOMPERIDONE
     Indication: NAUSEA
     Route: 065
  28. DRONABINOL. [Suspect]
     Active Substance: DRONABINOL
     Indication: NAUSEA
     Route: 065
  29. DIAZEPAM. [Suspect]
     Active Substance: DIAZEPAM
     Indication: FEAR
     Route: 065
  30. QUETIAPINE. [Suspect]
     Active Substance: QUETIAPINE
     Indication: FEAR
     Route: 065

REACTIONS (3)
  - Drug dependence [Unknown]
  - Fall [Unknown]
  - Therapeutic product effect incomplete [Unknown]
